FAERS Safety Report 5345599-6 (Version None)
Quarter: 2007Q2

REPORT INFORMATION
  Report Type: 
  Country: None (occurrence: None)
  Receive Date: 20070424
  Receipt Date: 20060316
  Transmission Date: 20071010
  Serious: Yes (Other)
  Sender: FDA-Public Use
  Company Number: TEST00206000883

PATIENT
  Sex: Male
  Weight: 82 kg

DRUGS (14)
  1. TESTOSTERONE [Suspect]
     Indication: BLOOD TESTOSTERONE DECREASED
     Dosage: SEE IMAGE
     Dates: start: 20040101, end: 20051101
  2. TESTOSTERONE [Suspect]
     Indication: ERECTILE DYSFUNCTION
     Dosage: SEE IMAGE
     Dates: start: 20040101, end: 20051101
  3. TICLOPIDINE (TICLOPIDINE) [Concomitant]
  4. CRESTOR (CRESTOR) [Concomitant]
  5. ZETIA [Concomitant]
  6. NEXIUM  (NEXIUM) [Concomitant]
  7. NIACIN (NIACIN) [Concomitant]
  8. ASPIRIN [Concomitant]
  9. CO Q 10 ENZYME (CO Q 10 ENZYME) [Concomitant]
  10. FISH OIL (FISH OIL) [Concomitant]
  11. DIOVAN [Concomitant]
  12. TRICOR [Concomitant]
  13. ACIPHEX [Concomitant]
  14. AMARYL [Concomitant]

REACTIONS (7)
  - BLOOD PRESSURE INCREASED [None]
  - BLOOD TESTOSTERONE ABNORMAL [None]
  - BLOOD TESTOSTERONE DECREASED [None]
  - DRUG INEFFECTIVE [None]
  - HIGH DENSITY LIPOPROTEIN DECREASED [None]
  - HYPERLIPIDAEMIA [None]
  - LOW DENSITY LIPOPROTEIN INCREASED [None]
